FAERS Safety Report 14668822 (Version 1)
Quarter: 2018Q1

REPORT INFORMATION
  Report Type: Spontaneous
  Country: US (occurrence: US)
  Receive Date: 20180321
  Receipt Date: 20180321
  Transmission Date: 20180509
  Serious: No
  Sender: FDA-Public Use
  Company Number: None

PATIENT
  Age: 51 Year
  Sex: Female
  Weight: 53.1 kg

DRUGS (3)
  1. BUPRENORPHINE. [Suspect]
     Active Substance: BUPRENORPHINE
     Indication: DEPRESSION
     Dosage: ?          QUANTITY:1 TABLET(S);?
     Route: 060
  2. MULTI VITAMIN [Concomitant]
     Active Substance: VITAMINS
  3. BIRTH CONTROL [Concomitant]
     Active Substance: UNSPECIFIED INGREDIENT

REACTIONS (6)
  - Nausea [None]
  - Headache [None]
  - Pityriasis rosea [None]
  - Malaise [None]
  - Off label use [None]
  - Arthralgia [None]

NARRATIVE: CASE EVENT DATE: 20180101
